FAERS Safety Report 5473866-4 (Version None)
Quarter: 2007Q3

REPORT INFORMATION
  Report Type: 
  Country: None (occurrence: None)
  Receive Date: 20070831
  Receipt Date: 20070611
  Transmission Date: 20080115
  Serious: No
  Sender: FDA-Public Use
  Company Number: 242804

PATIENT
  Age: 79 Year
  Sex: Male

DRUGS (5)
  1. LUCENTIS [Suspect]
     Indication: MACULAR DEGENERATION
     Dates: start: 20070305
  2. CELEBREX [Concomitant]
  3. SIMVASTATIN [Concomitant]
  4. FLOMAX [Concomitant]
  5. EYE CAPS (UNK INGREDIENTS) (GENERIC COMPONENT(S) NOT KNOWN) [Concomitant]

REACTIONS (1)
  - DRUG INEFFECTIVE [None]
